FAERS Safety Report 5029237-8 (Version None)
Quarter: 2006Q2

REPORT INFORMATION
  Report Type: 
  Country: None (occurrence: None)
  Receive Date: 20060613
  Receipt Date: 20060530
  Transmission Date: 20061013
  Serious: Yes (Hospitalization, Other)
  Sender: FDA-Public Use
  Company Number: US-2006-003893

PATIENT
  Age: 39 Year
  Sex: Female

DRUGS (2)
  1. BETASERON [Suspect]
     Indication: MULTIPLE SCLEROSIS
     Dosage: 8 MIU, EVERY 2D, SUBCUTANEOUS
     Route: 058
     Dates: start: 20020419
  2. ADVIL [Concomitant]

REACTIONS (9)
  - ABDOMINAL NEOPLASM [None]
  - ABSCESS RUPTURE [None]
  - BENIGN NEOPLASM OF BLADDER [None]
  - BREAST DISCHARGE [None]
  - DYSURIA [None]
  - FALLOPIAN TUBE CYST [None]
  - FATIGUE [None]
  - TEMPERATURE INTOLERANCE [None]
  - WEIGHT DECREASED [None]
